FAERS Safety Report 4662457-0 (Version None)
Quarter: 2005Q2

REPORT INFORMATION
  Report Type: 
  Country: None (occurrence: None)
  Receive Date: 20050512
  Receipt Date: 20050509
  Transmission Date: 20051028
  Serious: Yes (Life-Threatening, Hospitalization)
  Sender: FDA-Public Use
  Company Number: GBWYE528623MAR05

PATIENT
  Age: 17 Year
  Sex: Male

DRUGS (3)
  1. EFFEXOR [Suspect]
     Indication: DEPRESSION
     Dosage: SEE IMAGE
     Route: 048
     Dates: start: 20050301, end: 20050306
  2. EFFEXOR [Suspect]
     Indication: DEPRESSION
     Dosage: SEE IMAGE
     Route: 048
     Dates: start: 20050307
  3. FLUOXETINE [Suspect]
     Indication: DEPRESSION
     Dosage: 20 MG 1X PER DAY
     Dates: start: 20041110, end: 20050301

REACTIONS (2)
  - DRUG INTERACTION [None]
  - GRAND MAL CONVULSION [None]
